FAERS Safety Report 19607479 (Version 1)
Quarter: 2021Q3

REPORT INFORMATION
  Report Type: Spontaneous
  Country: SE (occurrence: SE)
  Receive Date: 20210726
  Receipt Date: 20210726
  Transmission Date: 20211014
  Serious: Yes (Death)
  Sender: FDA-Public Use
  Company Number: SE-ORGANON-1705SWE011101

PATIENT
  Age: 26 Year
  Sex: Male

DRUGS (5)
  1. DRONABINOL. [Interacting]
     Active Substance: DRONABINOL
     Dosage: UNK
  2. PREGABALIN. [Interacting]
     Active Substance: PREGABALIN
     Dosage: UNK
  3. CLONAZEPAM. [Interacting]
     Active Substance: CLONAZEPAM
     Dosage: UNK
  4. BUPRENORPHINE. [Interacting]
     Active Substance: BUPRENORPHINE
     Dosage: UNK
  5. MIRTAZAPINE. [Suspect]
     Active Substance: MIRTAZAPINE
     Dosage: UNK
     Route: 048

REACTIONS (2)
  - Accidental overdose [Fatal]
  - Toxicity to various agents [Fatal]
